FAERS Safety Report 5714527-3 (Version None)
Quarter: 2008Q2

REPORT INFORMATION
  Report Type: 
  Country: None (occurrence: None)
  Receive Date: 20080423
  Receipt Date: 20080415
  Transmission Date: 20081010
  Serious: Yes (Other)
  Sender: FDA-Public Use
  Company Number: GB-JNJFOC-20080403796

PATIENT
  Age: 10 Year
  Sex: Male

DRUGS (4)
  1. ALFENTANIL [Suspect]
     Indication: INDUCTION OF ANAESTHESIA
     Route: 042
  2. METHYLPHENIDATE HCL [Interacting]
     Indication: ATTENTION DEFICIT/HYPERACTIVITY DISORDER
     Route: 065
  3. PROPOFOL [Suspect]
     Indication: INDUCTION OF ANAESTHESIA
     Route: 042
  4. SEVOFLURANE [Concomitant]
     Indication: INDUCTION OF ANAESTHESIA
     Route: 065

REACTIONS (3)
  - BRADYCARDIA [None]
  - CARDIAC ARREST [None]
  - DRUG INTERACTION [None]
